FAERS Safety Report 4792596-5 (Version None)
Quarter: 2005Q4

REPORT INFORMATION
  Report Type: 
  Country: None (occurrence: None)
  Receive Date: 20051010
  Receipt Date: 20050928
  Transmission Date: 20060501
  Serious: Yes (Hospitalization, Other)
  Sender: FDA-Public Use
  Company Number: PHNU2005DE03300

PATIENT
  Sex: Female

DRUGS (6)
  1. CLOZARIL [Suspect]
     Indication: PSYCHOTIC DISORDER
     Dosage: 400 MG/DAY
     Route: 048
     Dates: start: 20040601
  2. CLOZARIL [Suspect]
     Dosage: 300 MG/DAY
     Route: 048
  3. TAXILAN /GFR/ [Suspect]
  4. LYOGEN [Suspect]
  5. GASTROZEPIN [Concomitant]
  6. DIPIPERON [Concomitant]

REACTIONS (3)
  - DRUG INTERACTION [None]
  - DRUG LEVEL INCREASED [None]
  - PSYCHOTIC DISORDER [None]
